FAERS Safety Report 12536750 (Version 9)
Quarter: 2017Q2

REPORT INFORMATION
  Report Type: Spontaneous
  Country: US (occurrence: US)
  Receive Date: 20160707
  Receipt Date: 20170608
  Transmission Date: 20170830
  Serious: No
  Sender: FDA-Public Use
  Company Number: PHHY2016US092237

PATIENT
  Sex: Female
  Weight: 82.54 kg

DRUGS (6)
  1. ZOFRAN [Suspect]
     Active Substance: ONDANSETRON HYDROCHLORIDE
     Dosage: 10 DF (10 TABLET)
     Route: 048
     Dates: start: 20061111
  2. ZOFRAN [Suspect]
     Active Substance: ONDANSETRON HYDROCHLORIDE
     Dosage: 4 MG, QD
     Route: 042
     Dates: start: 20061201, end: 20061201
  3. ZOFRAN [Suspect]
     Active Substance: ONDANSETRON HYDROCHLORIDE
     Indication: VOMITING IN PREGNANCY
     Dosage: 5 DF (5 TABLET)
     Route: 048
     Dates: start: 20061022
  4. ONDANSETRON [Suspect]
     Active Substance: ONDANSETRON
     Indication: VOMITING IN PREGNANCY
     Dosage: 10 DF (10 TABLET)
     Route: 048
     Dates: start: 20070328
  5. ZOFRAN [Suspect]
     Active Substance: ONDANSETRON HYDROCHLORIDE
     Dosage: 8 MG, QD
     Route: 042
     Dates: start: 20061107, end: 20061107
  6. ZOFRAN [Suspect]
     Active Substance: ONDANSETRON HYDROCHLORIDE
     Indication: VOMITING IN PREGNANCY
     Dosage: 4 MG, QD
     Route: 042
     Dates: start: 20061022, end: 20061022

REACTIONS (14)
  - Fatigue [Unknown]
  - Product use in unapproved indication [Unknown]
  - Asthenia [Unknown]
  - Maternal exposure during pregnancy [Unknown]
  - Decreased appetite [Unknown]
  - Dehydration [Unknown]
  - Feeling guilty [Unknown]
  - Anxiety [Unknown]
  - Dizziness [Unknown]
  - Constipation [Unknown]
  - Emotional distress [Unknown]
  - Heart rate increased [Unknown]
  - Dyspnoea [Unknown]
  - Panic attack [Unknown]
